FAERS Safety Report 25743059 (Version 1)
Quarter: 2025Q3

REPORT INFORMATION
  Report Type: Spontaneous
  Country: US (occurrence: US)
  Receive Date: 20250830
  Receipt Date: 20250830
  Transmission Date: 20251021
  Serious: Yes (Other)
  Sender: TEVA
  Company Number: US-TEVA-VS-3366269

PATIENT
  Age: 73 Year
  Sex: Male

DRUGS (1)
  1. DIFLUNISAL [Suspect]
     Active Substance: DIFLUNISAL
     Indication: Product used for unknown indication
     Route: 065

REACTIONS (5)
  - Arrhythmia [Unknown]
  - Arthralgia [Unknown]
  - Dyspnoea [Unknown]
  - Peripheral swelling [Unknown]
  - Fatigue [Unknown]
